FAERS Safety Report 7508314-3 (Version None)
Quarter: 2011Q2

REPORT INFORMATION
  Report Type: 
  Country: None (occurrence: None)
  Receive Date: 20110527
  Receipt Date: 20110516
  Transmission Date: 20111010
  Serious: Yes (Other)
  Sender: FDA-Public Use
  Company Number: JP-EISAI INC-E3810-04576-SPO-JP

PATIENT
  Age: 79 Year
  Sex: Female

DRUGS (3)
  1. RABEPRAZOLE SODIUM [Suspect]
     Indication: GASTRIC ULCER HELICOBACTER
     Route: 048
     Dates: start: 20101118, end: 20101125
  2. AMOXICILLIN [Suspect]
     Indication: GASTRIC ULCER HELICOBACTER
     Route: 048
     Dates: start: 20101118, end: 20101125
  3. CLARITHROMYCIN [Suspect]
     Indication: GASTRIC ULCER HELICOBACTER
     Route: 048
     Dates: start: 20101118, end: 20101125

REACTIONS (1)
  - ANAEMIA [None]
